FAERS Safety Report 9213890 (Version 4)
Quarter: 2014Q1

REPORT INFORMATION
  Report Type: Report from Study
  Country: US (occurrence: US)
  Receive Date: 20130405
  Receipt Date: 20140124
  Transmission Date: 20141002
  Serious: Yes (Hospitalization)
  Sender: FDA-Public Use
  Company Number: US-EISAI INC-E7272-00145-CLI-US

PATIENT
  Age: 68 Year
  Sex: Female

DRUGS (12)
  1. ONTAK [Suspect]
     Indication: MALIGNANT MELANOMA
     Route: 041
     Dates: start: 20130318
  2. ONTAK [Suspect]
     Route: 041
     Dates: start: 20130408
  3. HCT [Concomitant]
     Indication: HYPERTENSION
     Route: 048
  4. COZAAR [Concomitant]
     Indication: HYPERTENSION
     Route: 048
  5. TYLENOL EXTRA STRENGTH [Concomitant]
     Indication: PAIN
     Route: 048
  6. LOMOTIL [Concomitant]
     Route: 048
  7. HYDROCODONE-ACETAMINOPHEN [Concomitant]
     Indication: PAIN
     Route: 048
  8. MOTRIN [Concomitant]
     Indication: PAIN
     Route: 048
  9. ROBAXIN [Concomitant]
     Indication: PAIN
     Route: 048
  10. PROTONIX [Concomitant]
     Route: 048
  11. SENOKOT-S [Concomitant]
     Indication: CONSTIPATION PROPHYLAXIS
     Route: 048
  12. ZOLOFT [Concomitant]
     Indication: CONSTIPATION PROPHYLAXIS
     Route: 048

REACTIONS (1)
  - Pyrexia [Recovered/Resolved]
